FAERS Safety Report 24727269 (Version 2)
Quarter: 2025Q2

REPORT INFORMATION
  Report Type: Spontaneous
  Country: JP (occurrence: JP)
  Receive Date: 20241212
  Receipt Date: 20250611
  Transmission Date: 20250716
  Serious: Yes (Death, Hospitalization, Other)
  Sender: ABBVIE
  Company Number: JP-ABBVIE-6042985

PATIENT
  Age: 80 Year
  Sex: Female

DRUGS (1)
  1. RINVOQ [Suspect]
     Active Substance: UPADACITINIB
     Indication: Rheumatoid arthritis
     Route: 048
     Dates: start: 20220408, end: 20240920

REACTIONS (10)
  - Liver abscess [Fatal]
  - Pyrexia [Recovered/Resolved]
  - Malaise [Not Recovered/Not Resolved]
  - Decreased appetite [Unknown]
  - Oedema peripheral [Unknown]
  - Inflammation [Unknown]
  - Dehydration [Unknown]
  - Hepatic cancer metastatic [Unknown]
  - Hepatic cyst [Unknown]
  - Movement disorder [Unknown]

NARRATIVE: CASE EVENT DATE: 20240924
